FAERS Safety Report 11769898 (Version 1)
Quarter: 2015Q4

REPORT INFORMATION
  Report Type: Spontaneous
  Country: NL (occurrence: NL)
  Receive Date: 20151123
  Receipt Date: 20151123
  Transmission Date: 20160304
  Serious: Yes (Other)
  Sender: FDA-Public Use
  Company Number: NL-TAKEDA-2015TJP014990

PATIENT
  Sex: Male
  Weight: 125.6 kg

DRUGS (4)
  1. BRINTELLIX [Suspect]
     Active Substance: VORTIOXETINE HYDROBROMIDE
     Indication: DEPRESSION
     Dosage: 5 MG, QD
     Route: 048
     Dates: start: 20150410, end: 20150416
  2. BRINTELLIX [Suspect]
     Active Substance: VORTIOXETINE HYDROBROMIDE
     Indication: ANXIETY
  3. BRINTELLIX [Suspect]
     Active Substance: VORTIOXETINE HYDROBROMIDE
     Indication: SOCIAL PHOBIA
  4. BRINTELLIX [Suspect]
     Active Substance: VORTIOXETINE HYDROBROMIDE
     Indication: APATHY
     Dosage: 10 MG, QD
     Route: 048
     Dates: start: 20150417, end: 20150422

REACTIONS (11)
  - Weight increased [Recovered/Resolved]
  - Abnormal dreams [Recovered/Resolved]
  - Loss of libido [Recovered/Resolved]
  - Dry mouth [Recovered/Resolved]
  - Dizziness [Recovered/Resolved]
  - Suicidal ideation [Recovered/Resolved]
  - Dysuria [Recovered/Resolved]
  - Night sweats [Recovered/Resolved]
  - Insomnia [Recovered/Resolved]
  - Hyperhidrosis [Recovered/Resolved]
  - Somnolence [Recovered/Resolved]
